FAERS Safety Report 8923001 (Version 1)
Quarter: 2012Q4

REPORT INFORMATION
  Report Type: 
  Country: US (occurrence: US)
  Receive Date: 20121124
  Receipt Date: 20121124
  Transmission Date: 20130627
  Serious: No
  Sender: FDA-Public Use
  Company Number: US-TEVA-369718USA

PATIENT
  Age: 61 None
  Sex: Female

DRUGS (6)
  1. COPAXONE [Suspect]
     Dates: start: 201209, end: 20120920
  2. AMPYRA [Suspect]
     Indication: GAIT DISTURBANCE
  3. ALENDRONATE SODIUM [Concomitant]
  4. ESTROGEL [Concomitant]
  5. FLUTICASONE [Concomitant]
  6. LAMOTRIGINE [Concomitant]

REACTIONS (2)
  - Drug hypersensitivity [Recovered/Resolved]
  - Dizziness [Not Recovered/Not Resolved]
